FAERS Safety Report 7378150-X (Version None)
Quarter: 2011Q1

REPORT INFORMATION
  Report Type: 
  Country: None (occurrence: None)
  Receive Date: 20110328
  Receipt Date: 20110317
  Transmission Date: 20110831
  Serious: Yes (Other)
  Sender: FDA-Public Use
  Company Number: US-JNJFOC-2010018896

PATIENT
  Sex: Female
  Weight: 124 kg

DRUGS (24)
  1. LYRICA [Suspect]
     Route: 048
  2. MELOXICAM [Suspect]
     Indication: PAIN
     Route: 048
  3. TEGRETOL [Suspect]
     Indication: PERSONALITY DISORDER
     Dosage: DAILY DOSE TEXT: 400MG IN MORNING, 800MG IN EVENING
     Route: 048
  4. TEGRETOL [Suspect]
     Indication: MOOD SWINGS
     Dosage: DAILY DOSE TEXT: 400MG IN MORNING, 800MG IN EVENING
     Route: 048
  5. PROPRANOLOL [Suspect]
     Indication: BLOOD PRESSURE INCREASED
     Route: 048
  6. LEVOTHYROXINE SODIUM [Suspect]
     Indication: THYROID DISORDER
     Dosage: 50MCG
     Route: 048
  7. LIDODERM [Suspect]
     Indication: MYALGIA
     Route: 065
  8. VITAMIN E [Suspect]
     Indication: PRODUCT USED FOR UNKNOWN INDICATION
     Dosage: DAILY DOSE TEXT: UNK
     Route: 065
  9. ACETYLSALICYLIC ACID [Suspect]
     Indication: CARDIAC DISORDER
     Route: 048
  10. BACLOFEN [Suspect]
     Indication: RESTLESS LEGS SYNDROME
     Route: 048
  11. CYMBALTA [Suspect]
     Indication: DEPRESSION
     Route: 048
  12. METHADOSE [Suspect]
     Indication: PAIN
     Route: 048
  13. INSULIN DETEMIR [Suspect]
     Indication: DIABETES MELLITUS
     Dosage: 47 UNITS AM AND PM
     Route: 058
  14. FISH OIL [Suspect]
     Indication: PRODUCT USED FOR UNKNOWN INDICATION
     Dosage: DAILY DOSE TEXT: UNK
     Route: 065
  15. CETIRIZINE HYDROCHLORIDE [Suspect]
     Route: 048
  16. LYRICA [Suspect]
     Indication: FIBROMYALGIA
     Route: 048
  17. SIMVASTATIN [Suspect]
     Indication: BLOOD CHOLESTEROL INCREASED
     Route: 048
  18. OMEPRAZOLE [Suspect]
     Indication: GASTROOESOPHAGEAL REFLUX DISEASE
     Route: 048
  19. MIRALAX [Suspect]
     Indication: CONSTIPATION
     Route: 048
  20. CETIRIZINE HYDROCHLORIDE [Suspect]
     Indication: PRODUCT USED FOR UNKNOWN INDICATION
     Route: 048
  21. METHOCARBAMOL [Suspect]
     Indication: PAIN
     Route: 048
  22. LISINOPRIL [Suspect]
     Indication: BLOOD PRESSURE INCREASED
     Route: 048
  23. FLUTICASONE PROPIONATE [Suspect]
     Indication: NASAL SEPTUM DEVIATION
     Route: 045
     Dates: start: 20100101
  24. PROVIGIL [Suspect]
     Indication: SLEEP APNOEA SYNDROME
     Route: 048

REACTIONS (2)
  - FIBROMYALGIA [None]
  - CONVULSION [None]
